APPROVED DRUG PRODUCT: CILOSTAZOL
Active Ingredient: CILOSTAZOL
Strength: 100MG
Dosage Form/Route: TABLET;ORAL
Application: A077831 | Product #001 | TE Code: AB
Applicant: CHARTWELL RX SCIENCES LLC
Approved: Sep 24, 2012 | RLD: No | RS: No | Type: RX